FAERS Safety Report 6388522-8 (Version None)
Quarter: 2009Q4

REPORT INFORMATION
  Report Type: 
  Country: None (occurrence: None)
  Receive Date: 20091005
  Receipt Date: 20090928
  Transmission Date: 20100525
  Serious: Yes (Hospitalization)
  Sender: FDA-Public Use
  Company Number: B0596086A

PATIENT
  Sex: Female

DRUGS (2)
  1. TYKERB [Suspect]
     Indication: BREAST CANCER
     Dosage: 1250MG PER DAY
     Route: 048
     Dates: start: 20090901, end: 20090925
  2. XELODA [Concomitant]
     Indication: BREAST CANCER
     Dosage: 750MGM2 TWICE PER DAY
     Route: 048

REACTIONS (1)
  - DIARRHOEA HAEMORRHAGIC [None]
